FAERS Safety Report 23921618 (Version 2)
Quarter: 2024Q2

REPORT INFORMATION
  Report Type: Spontaneous
  Country: PL (occurrence: PL)
  Receive Date: 20240530
  Receipt Date: 20240611
  Transmission Date: 20240716
  Serious: Yes (Hospitalization, Other)
  Sender: FDA-Public Use
  Company Number: PL-GILEAD-2024-0673590

PATIENT
  Age: 42 Year
  Sex: Male

DRUGS (4)
  1. BICTEGRAVIR\EMTRICITABINE\TENOFOVIR ALAFENAMIDE [Suspect]
     Active Substance: BICTEGRAVIR\EMTRICITABINE\TENOFOVIR ALAFENAMIDE
     Indication: HIV infection
     Dosage: 1 DOSAGE FORM, QD
     Route: 065
     Dates: start: 20240304
  2. BISEPTOL [Concomitant]
     Active Substance: SULFAMETHOXAZOLE\TRIMETHOPRIM
     Dosage: DISCONTINUED
  3. VITAMIN D NOS [Concomitant]
     Active Substance: CHOLECALCIFEROL\ERGOCALCIFEROL
     Dosage: DISCONTINUED
  4. PENTAMIDINE [Concomitant]
     Active Substance: PENTAMIDINE
     Indication: Pneumocystis jirovecii pneumonia
     Dosage: UNK
     Dates: start: 20240416

REACTIONS (15)
  - Hepatic enzyme increased [Recovering/Resolving]
  - Autoimmune hepatitis [Unknown]
  - Immune reconstitution inflammatory syndrome [Unknown]
  - Sepsis [Unknown]
  - Mycobacterium avium complex infection [Unknown]
  - Hypoaesthesia [Unknown]
  - Oropharyngeal pain [Unknown]
  - Dermatitis allergic [Unknown]
  - Jaundice [Recovered/Resolved]
  - Food allergy [Unknown]
  - Hepatomegaly [Unknown]
  - Anaemia [Recovered/Resolved]
  - Pain in extremity [Recovering/Resolving]
  - Hypertension [Unknown]
  - Heart rate increased [Unknown]
